FAERS Safety Report 14346689 (Version 2)
Quarter: 2018Q1

REPORT INFORMATION
  Report Type: Spontaneous
  Country: US (occurrence: US)
  Receive Date: 20180103
  Receipt Date: 20180103
  Transmission Date: 20180509
  Serious: Yes (Other)
  Sender: FDA-Public Use
  Company Number: US-TEVA-2017-US-839711

PATIENT
  Age: 64 Year
  Sex: Female

DRUGS (5)
  1. PACLITAXEL. [Suspect]
     Active Substance: PACLITAXEL
     Indication: SEROUS CYSTADENOCARCINOMA OVARY
     Dosage: 3 CYCLES
     Route: 065
  2. CARBOPLATIN. [Suspect]
     Active Substance: CARBOPLATIN
     Indication: SEROUS CYSTADENOCARCINOMA OVARY
     Dosage: 3 CYCLES
     Route: 065
  3. PACLITAXEL. [Suspect]
     Active Substance: PACLITAXEL
     Indication: SEROUS CYSTADENOCARCINOMA OVARY
     Dosage: ADDITIONAL 4 CYCLES
     Route: 065
  4. BEVACIZUMAB. [Suspect]
     Active Substance: BEVACIZUMAB
     Indication: SEROUS CYSTADENOCARCINOMA OVARY
     Dosage: 2 CYCLES
     Route: 065
  5. CARBOPLATIN. [Suspect]
     Active Substance: CARBOPLATIN
     Indication: SEROUS CYSTADENOCARCINOMA OVARY
     Dosage: ADDITIONAL 4 CYCLES
     Route: 065

REACTIONS (2)
  - Muscle spasms [Unknown]
  - Neuropathy peripheral [Unknown]
